FAERS Safety Report 9068223 (Version 2)
Quarter: 2013Q1

REPORT INFORMATION
  Report Type: Spontaneous
  Country: FR (occurrence: FR)
  Receive Date: 20130206
  Receipt Date: 20130212
  Transmission Date: 20140127
  Serious: Yes (Other)
  Sender: FDA-Public Use
  Company Number: FR-PFIZER INC-2013041507

PATIENT
  Age: 17 Year
  Sex: Female

DRUGS (2)
  1. STEDIRIL [Suspect]
     Indication: CONTRACEPTION
     Dosage: 1 DF, 1X/DAY
     Route: 048
     Dates: start: 20121127, end: 20121206
  2. LAMICTAL [Interacting]
     Indication: PARTIAL SEIZURES
     Dosage: 400 MG DAILY
     Route: 048
     Dates: start: 2012

REACTIONS (3)
  - Drug interaction [Recovered/Resolved]
  - Drug ineffective [Recovered/Resolved]
  - Partial seizures [Recovered/Resolved]
